FAERS Safety Report 5660520-9 (Version None)
Quarter: 2008Q1

REPORT INFORMATION
  Report Type: 
  Country: None (occurrence: None)
  Receive Date: 20080311
  Receipt Date: 20071106
  Transmission Date: 20080703
  Serious: No
  Sender: FDA-Public Use
  Company Number: US-BAYER-200713654BCC

PATIENT
  Age: 22 Year
  Sex: Male
  Weight: 96 kg

DRUGS (2)
  1. ALEVE [Suspect]
     Indication: BACK PAIN
     Dosage: TOTAL DAILY DOSE: 5280 MG  UNIT DOSE: 220 MG
     Route: 048
     Dates: start: 20071106
  2. ADVAIR DISKUS 100/50 [Concomitant]

REACTIONS (2)
  - BACK PAIN [None]
  - DIZZINESS [None]
